FAERS Safety Report 21494703 (Version 1)
Quarter: 2022Q4

REPORT INFORMATION
  Report Type: Other
  Country: CA (occurrence: None)
  Receive Date: 20221021
  Receipt Date: 20221021
  Transmission Date: 20230113
  Serious: Yes (Hospitalization)
  Sender: FDA-Public Use
  Company Number: CA-ROCHE-2630890

PATIENT
  Sex: Male

DRUGS (1)
  1. PULMOZYME [Suspect]
     Active Substance: DORNASE ALFA
     Indication: Cystic fibrosis
     Dosage: 2.5 MG NEB INH ONCE DAILY
     Route: 055
     Dates: start: 20150211, end: 202102

REACTIONS (2)
  - Hospitalisation [Unknown]
  - Product dose omission issue [Unknown]
